FAERS Safety Report 9763534 (Version 2)
Quarter: 2013Q4

REPORT INFORMATION
  Report Type: Spontaneous
  Country: US (occurrence: US)
  Receive Date: 20131216
  Receipt Date: 20131216
  Transmission Date: 20140711
  Serious: Yes (Other)
  Sender: FDA-Public Use
  Company Number: CHPA2013US018089

PATIENT
  Sex: Female

DRUGS (2)
  1. THERAFLU UNKNOWN [Suspect]
     Indication: INFECTION
     Dosage: UNK
     Route: 048
  2. THERAFLU UNKNOWN [Suspect]
     Indication: OFF LABEL USE

REACTIONS (6)
  - Infection [Recovering/Resolving]
  - Sneezing [Recovering/Resolving]
  - Oropharyngeal pain [Recovering/Resolving]
  - Sinus congestion [Recovering/Resolving]
  - Cough [Recovering/Resolving]
  - Chills [Recovering/Resolving]
